FAERS Safety Report 5629314-4 (Version None)
Quarter: 2008Q1

REPORT INFORMATION
  Report Type: 
  Country: None (occurrence: None)
  Receive Date: 20080215
  Receipt Date: 20080215
  Transmission Date: 20080703
  Serious: No
  Sender: FDA-Public Use
  Company Number: None

PATIENT
  Age: 30 Year
  Sex: Female
  Weight: 60 kg

DRUGS (1)
  1. CHLOROPROCAINE HCL [Suspect]
     Indication: CAESAREAN SECTION
     Dosage: EPIDURAL 15CC (10CC/SEC)
     Route: 008

REACTIONS (2)
  - BACK PAIN [None]
  - DRUG INEFFECTIVE [None]
